FAERS Safety Report 9723122 (Version 3)
Quarter: 2014Q1

REPORT INFORMATION
  Report Type: Report from Study
  Country: US (occurrence: US)
  Receive Date: 20131202
  Receipt Date: 20140305
  Transmission Date: 20141002
  Serious: Yes (Death, Hospitalization)
  Sender: FDA-Public Use
  Company Number: US-DENDREON CORPORATION-2013PROUSA03336

PATIENT
  Age: 76 Year
  Sex: Male
  Weight: 66.3 kg

DRUGS (16)
  1. SIPULEUCEL-T [Suspect]
     Indication: PROSTATE CANCER METASTATIC
     Dosage: 250 ML, SINGLE
     Route: 042
     Dates: start: 20120206, end: 20120206
  2. SIPULEUCEL-T [Suspect]
     Dosage: 250 ML, SINGLE
     Route: 042
     Dates: start: 20120220, end: 20120220
  3. SIPULEUCEL-T [Suspect]
     Dosage: 250 ML, SINGLE
     Route: 042
     Dates: start: 20120305, end: 20120305
  4. IMODIUM [Concomitant]
     Indication: DIARRHOEA
     Dosage: 2 MG, PRN
     Route: 048
  5. LOMOTIL [Concomitant]
     Indication: DIARRHOEA
     Dosage: 1 DF, QID PRN
     Route: 048
  6. PREDNISONE [Concomitant]
     Indication: PROPHYLAXIS
     Dosage: 3 MG, QD
     Route: 048
  7. DILTIAZEM [Concomitant]
     Indication: CARDIAC FAILURE CONGESTIVE
     Dosage: 120 MG, QD
  8. FUROSEMIDE [Concomitant]
     Indication: CARDIAC FAILURE CONGESTIVE
     Dosage: 80 MG, QOD
     Route: 048
  9. IMDUR [Concomitant]
     Indication: CARDIAC FAILURE CONGESTIVE
     Dosage: 30 MG, QD
  10. KLOR-CON [Concomitant]
     Indication: HYPOKALAEMIA
     Dosage: 20 MEQ, BID
  11. LEUPROLIDE [Concomitant]
     Indication: PROSTATE CANCER
     Dosage: 1 MG, UNK EVERY 3 MONTHS
     Route: 030
  12. METOPROLOL [Concomitant]
     Indication: HYPERTENSION
     Dosage: 50 MG, QD
  13. OMEPRAZOLE [Concomitant]
     Indication: DYSPEPSIA
     Dosage: 40 MG, QD
  14. MULTIVITAMIN [Concomitant]
     Indication: PROPHYLAXIS
     Dosage: 1 DF, QD
  15. ARICEPT [Concomitant]
     Indication: PRODUCT USED FOR UNKNOWN INDICATION
  16. ZOMETA [Concomitant]
     Indication: PRODUCT USED FOR UNKNOWN INDICATION

REACTIONS (2)
  - Traumatic intracranial haemorrhage [Fatal]
  - Fall [Fatal]
